FAERS Safety Report 14838598 (Version 2)
Quarter: 2018Q2

REPORT INFORMATION
  Report Type: Spontaneous
  Country: SE (occurrence: SE)
  Receive Date: 20180502
  Receipt Date: 20180628
  Transmission Date: 20180711
  Serious: Yes (Other)
  Sender: FDA-Public Use
  Company Number: SE-TEVA-2018-SE-886799

PATIENT
  Sex: Male

DRUGS (1)
  1. GABAPENTIN. [Suspect]
     Active Substance: GABAPENTIN
     Indication: TRIGEMINAL NEURALGIA
     Route: 065

REACTIONS (2)
  - Hypogammaglobulinaemia [Not Recovered/Not Resolved]
  - Pruritus allergic [Not Recovered/Not Resolved]
